FAERS Safety Report 19681431 (Version 1)
Quarter: 2021Q3

REPORT INFORMATION
  Report Type: Spontaneous
  Country: US (occurrence: US)
  Receive Date: 20210810
  Receipt Date: 20210810
  Transmission Date: 20211014
  Serious: Yes (Other)
  Sender: FDA-Public Use
  Company Number: US-IGSA-BIG0014531

PATIENT
  Age: 60 Year
  Sex: Female
  Weight: 56 kg

DRUGS (15)
  1. ASPIRIN (E.C.) [Concomitant]
     Active Substance: ASPIRIN
  2. HYDROXYZINE [Concomitant]
     Active Substance: HYDROXYZINE HYDROCHLORIDE
  3. CALCIUM CARBONATE AND VITAMIN D3 [Concomitant]
     Active Substance: CALCIUM CARBONATE\CHOLECALCIFEROL
  4. PREDNISONE. [Concomitant]
     Active Substance: PREDNISONE
  5. GAMUNEX?C [Suspect]
     Active Substance: HUMAN IMMUNOGLOBULIN G
     Indication: DERMATOMYOSITIS
     Dosage: 90 GRAM, Q.M.T.
  6. GABAPENTIN. [Concomitant]
     Active Substance: GABAPENTIN
  7. ZOLEDRONIC ACID [Concomitant]
     Active Substance: ZOLEDRONIC ACID
  8. ALBUTEROL [SALBUTAMOL] [Concomitant]
     Active Substance: ALBUTEROL
  9. IPRATROPIUM [Concomitant]
     Active Substance: IPRATROPIUM
  10. TACROLIMUS. [Concomitant]
     Active Substance: TACROLIMUS
  11. HYDROXYCHLOROQUINE [Concomitant]
     Active Substance: HYDROXYCHLOROQUINE
  12. CHOLESTYRAMINE. [Concomitant]
     Active Substance: CHOLESTYRAMINE
  13. OMEPRAZOLE. [Concomitant]
     Active Substance: OMEPRAZOLE
  14. COENZYME Q10 + VITAMIN E [Concomitant]
  15. MULTIVITAMIN + MINERAL [Concomitant]
     Active Substance: MINERALS\VITAMINS

REACTIONS (2)
  - Gingival discolouration [Recovered/Resolved]
  - Lip swelling [Recovered/Resolved]
